FAERS Safety Report 5197769-8 (Version None)
Quarter: 2006Q4

REPORT INFORMATION
  Report Type: 
  Country: None (occurrence: None)
  Receive Date: 20061228
  Receipt Date: 20061213
  Transmission Date: 20070319
  Serious: Yes (Death, Hospitalization)
  Sender: FDA-Public Use
  Company Number: 234322

PATIENT
  Age: 66 Year
  Sex: Male

DRUGS (4)
  1. AVASTIN [Suspect]
     Indication: COLORECTAL CANCER
     Dosage: 540 MG, INTRAVENOUS
     Route: 042
     Dates: start: 20060330
  2. CAPECITABINE (CAPECITABINE) [Suspect]
     Indication: COLORECTAL CANCER
     Dosage: 1000 MG, BID, ORAL
     Route: 048
     Dates: start: 20060330
  3. OXALIPLATIN [Suspect]
     Indication: COLORECTAL CANCER
     Dosage: 245 MG, INTRAVENOUS
     Route: 042
     Dates: start: 20060330
  4. CETUXIMAB (CETUXIMAB) [Suspect]
     Indication: COLORECTAL CANCER
     Dosage: 470 MG, DAYS 1,8,15, INTRAVENOUS
     Route: 042
     Dates: start: 20060330

REACTIONS (4)
  - ACTIVATED PARTIAL THROMBOPLASTIN TIME PROLONGED [None]
  - BLOOD LACTATE DEHYDROGENASE INCREASED [None]
  - CARCINOEMBRYONIC ANTIGEN INCREASED [None]
  - THROMBOTIC THROMBOCYTOPENIC PURPURA [None]
